FAERS Safety Report 6469938-8 (Version None)
Quarter: 2009Q4

REPORT INFORMATION
  Report Type: 
  Country: None (occurrence: None)
  Receive Date: 20091203
  Receipt Date: 20071011
  Transmission Date: 20100525
  Serious: Yes (Hospitalization)
  Sender: FDA-Public Use
  Company Number: US-ELI_LILLY_AND_COMPANY-US200710002989

PATIENT
  Sex: Male
  Weight: 118.37 kg

DRUGS (4)
  1. BYETTA [Suspect]
     Indication: TYPE 2 DIABETES MELLITUS
     Dosage: 5 UG, 2/D
     Route: 058
     Dates: start: 20070917
  2. GLUCOPHAGE [Concomitant]
     Indication: DIABETES MELLITUS
     Dosage: 500 MG, DAILY (1/D)
     Route: 048
     Dates: start: 20070917
  3. INFLUENZA VACCINE [Concomitant]
     Dosage: UNK, UNKNOWN
     Dates: start: 20070928, end: 20070928
  4. PNEUMOCOCCAL VACCINE [Concomitant]
     Dosage: UNK, UNKNOWN
     Dates: start: 20070928, end: 20070928

REACTIONS (10)
  - ALLERGY TO VACCINE [None]
  - BLOOD PRESSURE DECREASED [None]
  - HYPERHIDROSIS [None]
  - INJECTION SITE ERYTHEMA [None]
  - INJECTION SITE INFECTION [None]
  - INJECTION SITE NODULE [None]
  - INJECTION SITE RASH [None]
  - PALLOR [None]
  - PYREXIA [None]
  - WEIGHT DECREASED [None]
